FAERS Safety Report 9023543 (Version 1)
Quarter: 2013Q1

REPORT INFORMATION
  Report Type: Spontaneous
  Country: US (occurrence: US)
  Receive Date: 20130121
  Receipt Date: 20130121
  Transmission Date: 20140127
  Serious: Yes (Death)
  Sender: FDA-Public Use
  Company Number: PHEH2013US001763

PATIENT
  Age: 83 None
  Sex: Male

DRUGS (23)
  1. RECLAST [Suspect]
     Indication: OSTEOPOROSIS
     Dosage: 5 MG, YEARLY
     Route: 042
     Dates: start: 20111206
  2. PLAVIX [Concomitant]
     Dosage: 1 DF, DAILY
  3. TOPROL [Concomitant]
     Dosage: 1 DF, BID
  4. OXYBUTYNIN [Concomitant]
     Dosage: 2 DF, AT NIGHT
  5. ZOLPIDEM [Concomitant]
     Dosage: 1-2 DF, AT NIGHT
  6. PRIMIDONE [Concomitant]
     Dosage: 1 DF, TID
  7. SINGULAIR [Concomitant]
     Dosage: 1 DF, AFTER DINNER
  8. WARFARIN [Concomitant]
     Dosage: 1-1.5  DF, DAILY
  9. VENTOLIN                           /00942701/ [Concomitant]
     Dosage: 1-2 INHALATIONS AS NEEDED (4-6 HOURS)
  10. SPIRIVA [Concomitant]
     Dosage: 2 PUFFS, QD
  11. LOMOTIL [Concomitant]
     Dosage: 1-2 DF, DAILY AS NEEDED
  12. OXYTROL [Concomitant]
     Dosage: 2 DF, WEEKLY
  13. NITRODUR [Concomitant]
     Dosage: 1 DF, DAILY
  14. NITROSTAT [Concomitant]
     Dosage: 1-3 AS NEEDED
  15. CENTRUM [Concomitant]
     Dosage: 1 DF, UNK
  16. NIACIN [Concomitant]
     Dosage: 1 DF, DAILY
  17. PRILOSEC [Concomitant]
     Dosage: AS NEEDED
  18. CITRACAL [Concomitant]
     Dosage: 2 DF, DAILY
  19. COLACE [Concomitant]
     Dosage: 1 DF, DAILY
  20. ALLEGRA [Concomitant]
     Dosage: AS NEEDED
  21. VITAMIN D NOS [Concomitant]
     Dosage: 1 DF, DAILY
  22. IMODIUM [Concomitant]
     Dosage: 4 DAILY, AS NEEDED
  23. TYLENOL PM [Concomitant]
     Dosage: 2 DF, AT NIGHT

REACTIONS (1)
  - Death [Fatal]
